FAERS Safety Report 13016167 (Version 4)
Quarter: 2017Q1

REPORT INFORMATION
  Report Type: Spontaneous
  Country: US (occurrence: US)
  Receive Date: 20161212
  Receipt Date: 20170322
  Transmission Date: 20170428
  Serious: Yes (Death, Life-Threatening, Hospitalization)
  Sender: FDA-Public Use
  Company Number: US-JNJFOC-20161121241

PATIENT
  Age: 70 Year
  Sex: Male

DRUGS (3)
  1. XARELTO [Suspect]
     Active Substance: RIVAROXABAN
     Indication: DEEP VEIN THROMBOSIS
     Route: 048
     Dates: end: 201402
  2. XARELTO [Suspect]
     Active Substance: RIVAROXABAN
     Indication: DEEP VEIN THROMBOSIS
     Route: 048
     Dates: start: 201301, end: 2013
  3. XARELTO [Suspect]
     Active Substance: RIVAROXABAN
     Indication: DEEP VEIN THROMBOSIS
     Route: 048
     Dates: start: 201307, end: 201401

REACTIONS (10)
  - Renal injury [Unknown]
  - Staphylococcal sepsis [Fatal]
  - Renal failure [Fatal]
  - Internal haemorrhage [Unknown]
  - Laryngeal cancer [Fatal]
  - Respiratory failure [Unknown]
  - Toe amputation [Unknown]
  - Blood blister [Unknown]
  - Cerebrovascular accident [Unknown]
  - Skin ulcer [Unknown]

NARRATIVE: CASE EVENT DATE: 201401
